FAERS Safety Report 9095643 (Version 1)
Quarter: 2013Q1

REPORT INFORMATION
  Report Type: Spontaneous
  Country: GB (occurrence: GB)
  Receive Date: 20130219
  Receipt Date: 20130219
  Transmission Date: 20140127
  Serious: Yes (Hospitalization, Other)
  Sender: FDA-Public Use
  Company Number: GB-MYLANLABS-2013S1002740

PATIENT
  Age: 71 Year
  Sex: Male
  Weight: 76.2 kg

DRUGS (5)
  1. OLANZAPINE [Suspect]
     Indication: PRODUCT USED FOR UNKNOWN INDICATION
     Dates: start: 20130110
  2. OLANZAPINE [Suspect]
     Indication: PRODUCT USED FOR UNKNOWN INDICATION
  3. OLANZAPINE [Suspect]
     Indication: PRODUCT USED FOR UNKNOWN INDICATION
  4. VENLAFAXINE [Suspect]
     Indication: PRODUCT USED FOR UNKNOWN INDICATION
  5. VENLAFAXINE [Suspect]
     Indication: PRODUCT USED FOR UNKNOWN INDICATION

REACTIONS (12)
  - Abnormal behaviour [Unknown]
  - Anger [Unknown]
  - Balance disorder [Not Recovered/Not Resolved]
  - Condition aggravated [Unknown]
  - Crying [Unknown]
  - Discomfort [Unknown]
  - Euphoric mood [Unknown]
  - Agitation [Unknown]
  - Obsessive-compulsive disorder [Unknown]
  - Insomnia [Unknown]
  - Joint swelling [Not Recovered/Not Resolved]
  - Gait disturbance [Unknown]
